FAERS Safety Report 16171700 (Version 3)
Quarter: 2020Q2

REPORT INFORMATION
  Report Type: Report from Study
  Country: US (occurrence: US)
  Receive Date: 20190408
  Receipt Date: 20200417
  Transmission Date: 20200713
  Serious: No
  Sender: FDA-Public Use
  Company Number: PHEH2019US015239

PATIENT
  Age: 37 Year
  Sex: Female

DRUGS (1)
  1. GILENYA [Suspect]
     Active Substance: FINGOLIMOD HYDROCHLORIDE
     Indication: MULTIPLE SCLEROSIS
     Dosage: 0.5 MG, QD
     Route: 048
     Dates: start: 20190329

REACTIONS (10)
  - Coronavirus infection [Recovering/Resolving]
  - Cough [Unknown]
  - Headache [Unknown]
  - Chills [Unknown]
  - Hepatic enzyme increased [Unknown]
  - Increased appetite [Recovering/Resolving]
  - Fatigue [Unknown]
  - Eye disorder [Unknown]
  - Pyrexia [Unknown]
  - Weight increased [Recovering/Resolving]

NARRATIVE: CASE EVENT DATE: 20190404
